FAERS Safety Report 7419035-X (Version None)
Quarter: 2011Q2

REPORT INFORMATION
  Report Type: 
  Country: None (occurrence: None)
  Receive Date: 20110406
  Receipt Date: 20110324
  Transmission Date: 20111010
  Serious: Yes (Other)
  Sender: FDA-Public Use
  Company Number: 029911

PATIENT
  Age: 76 Year
  Sex: Male

DRUGS (4)
  1. NEUPRO [Suspect]
     Indication: PARKINSON'S DISEASE
     Dosage: 2 MG QD, TRANSDERMAL, 4 MG QD TRANSDERMAL, 6 MG QD TRANSDERMAL, 4 MG QD TRANSDERMAL, 2 MG QD TRANSDE
     Route: 062
     Dates: start: 20110319, end: 20110322
  2. NEUPRO [Suspect]
     Indication: PARKINSON'S DISEASE
     Dosage: 2 MG QD, TRANSDERMAL, 4 MG QD TRANSDERMAL, 6 MG QD TRANSDERMAL, 4 MG QD TRANSDERMAL, 2 MG QD TRANSDE
     Route: 062
     Dates: start: 20110322
  3. NEUPRO [Suspect]
     Indication: PARKINSON'S DISEASE
     Dosage: 2 MG QD, TRANSDERMAL, 4 MG QD TRANSDERMAL, 6 MG QD TRANSDERMAL, 4 MG QD TRANSDERMAL, 2 MG QD TRANSDE
     Route: 062
     Dates: start: 20110314, end: 20110318
  4. SINTROM [Concomitant]

REACTIONS (4)
  - DIZZINESS [None]
  - HALLUCINATION, VISUAL [None]
  - AGGRESSION [None]
  - CONFUSIONAL STATE [None]
